FAERS Safety Report 8354855-9 (Version None)
Quarter: 2012Q2

REPORT INFORMATION
  Report Type: 
  Country: None (occurrence: None)
  Receive Date: 20120511
  Receipt Date: 20110908
  Transmission Date: 20120825
  Serious: Yes (Hospitalization)
  Sender: FDA-Public Use
  Company Number: US-ALEXION-A201001110

PATIENT
  Sex: Male

DRUGS (9)
  1. SOLIRIS [Suspect]
     Indication: PAROXYSMAL NOCTURNAL HAEMOGLOBINURIA
     Dosage: UNK
     Route: 042
  2. SOLIRIS [Suspect]
     Dosage: 300 MG, UNK
     Route: 042
     Dates: start: 20091005, end: 20091005
  3. SOLIRIS [Suspect]
     Dosage: 900 MG, Q2W
     Route: 042
     Dates: start: 20090817
  4. SOLIRIS [Suspect]
     Dosage: 900 MG, Q2W
     Route: 042
     Dates: start: 20100101
  5. PREDNISONE TAB [Concomitant]
     Indication: HYPOPITUITARISM
     Dosage: 10 MG, QD
     Route: 048
  6. FOLIC ACID [Concomitant]
     Dosage: UNK
     Route: 048
  7. SOLIRIS [Suspect]
     Dosage: 600 MG, QW
     Route: 042
     Dates: start: 20090901, end: 20091101
  8. SOLIRIS [Suspect]
     Dosage: 900 MG, Q2W
     Route: 042
     Dates: start: 20100818
  9. LEVOTHYROXINE SODIUM [Concomitant]
     Indication: HYPOPITUITARISM
     Dosage: 125 MG, QD
     Route: 048

REACTIONS (11)
  - PAIN IN EXTREMITY [None]
  - EXCORIATION [None]
  - HAEMOGLOBIN DECREASED [None]
  - CELLULITIS [None]
  - STAPHYLOCOCCAL INFECTION [None]
  - CHROMATURIA [None]
  - PYREXIA [None]
  - NAUSEA [None]
  - FALL [None]
  - CONDITION AGGRAVATED [None]
  - PAROXYSMAL NOCTURNAL HAEMOGLOBINURIA [None]
